FAERS Safety Report 25750048 (Version 1)
Quarter: 2025Q3

REPORT INFORMATION
  Report Type: Spontaneous
  Country: US (occurrence: US)
  Receive Date: 20250902
  Receipt Date: 20250902
  Transmission Date: 20251021
  Serious: Yes (Other)
  Sender: SANDOZ
  Company Number: US-SANDOZ-SDZ2025US062894

PATIENT
  Sex: Female

DRUGS (15)
  1. AZITHROMYCIN [Suspect]
     Active Substance: AZITHROMYCIN
     Indication: Product used for unknown indication
     Dosage: 500 MG, QD
     Route: 048
     Dates: start: 2022
  2. AZITHROMYCIN [Suspect]
     Active Substance: AZITHROMYCIN
     Dosage: 500 MG, QD
     Route: 048
     Dates: start: 20250625
  3. AMIKACIN [Suspect]
     Active Substance: AMIKACIN
     Indication: Product used for unknown indication
     Route: 042
     Dates: start: 20240807
  4. CLOFAZIMINE [Suspect]
     Active Substance: CLOFAZIMINE
     Indication: Product used for unknown indication
     Route: 065
     Dates: start: 202502
  5. ETHAMBUTOL [Suspect]
     Active Substance: ETHAMBUTOL HYDROCHLORIDE
     Indication: Product used for unknown indication
     Route: 065
     Dates: start: 20240625, end: 2024
  6. LAMPRENE [Suspect]
     Active Substance: CLOFAZIMINE
     Indication: Product used for unknown indication
     Route: 065
  7. RIFAMPIN [Suspect]
     Active Substance: RIFAMPIN
     Indication: Product used for unknown indication
     Dosage: 600 MG, QD
     Route: 065
     Dates: start: 20240625
  8. RIFAMPIN [Suspect]
     Active Substance: RIFAMPIN
     Dosage: 600 MG, QD
     Route: 065
     Dates: start: 2022
  9. COLCHICINE [Concomitant]
     Active Substance: COLCHICINE
     Indication: Product used for unknown indication
     Dosage: 0.6 MG, BID
     Route: 048
     Dates: start: 2022, end: 202503
  10. LOSARTAN [Concomitant]
     Active Substance: LOSARTAN
     Indication: Product used for unknown indication
     Dosage: 25 MG, QD
     Route: 048
     Dates: start: 2025
  11. OMEPRAZOLE [Concomitant]
     Active Substance: OMEPRAZOLE
     Indication: Product used for unknown indication
     Dosage: 40 MG, BID
     Route: 048
     Dates: start: 2016
  12. OXYBUTYNIN [Concomitant]
     Active Substance: OXYBUTYNIN
     Indication: Product used for unknown indication
     Dosage: 5 MG, BID
     Route: 048
     Dates: start: 2021
  13. PREGABALIN [Concomitant]
     Active Substance: PREGABALIN
     Indication: Product used for unknown indication
     Dosage: 75 MG, QD
     Route: 048
     Dates: start: 202412, end: 202506
  14. SIMVASTATIN [Concomitant]
     Active Substance: SIMVASTATIN
     Indication: Product used for unknown indication
     Dosage: 20 MG, QD
     Route: 048
     Dates: start: 2022
  15. VITAMIN B [Concomitant]
     Active Substance: VITAMIN B
     Indication: Product used for unknown indication
     Route: 048
     Dates: start: 2023

REACTIONS (5)
  - Long QT syndrome [Unknown]
  - Pulmonary granuloma [Unknown]
  - Dyschromatopsia [Unknown]
  - Nausea [Unknown]
  - Diarrhoea [Unknown]
